FAERS Safety Report 7712461-0 (Version None)
Quarter: 2011Q3

REPORT INFORMATION
  Report Type: 
  Country: None (occurrence: None)
  Receive Date: 20110826
  Receipt Date: 20110826
  Transmission Date: 20111222
  Serious: Yes (Other)
  Sender: FDA-Public Use
  Company Number: None

PATIENT
  Age: 50 Year
  Sex: Male

DRUGS (1)
  1. CIPROFLOXACIN [Suspect]
     Indication: ANTIBIOTIC PROPHYLAXIS
     Dosage: 400 MG
     Route: 042
     Dates: start: 20110818, end: 20110818

REACTIONS (2)
  - INFUSION SITE PRURITUS [None]
  - INFUSION SITE ERYTHEMA [None]
